FAERS Safety Report 7764960-3 (Version None)
Quarter: 2011Q3

REPORT INFORMATION
  Report Type: 
  Country: None (occurrence: None)
  Receive Date: 20110921
  Receipt Date: 20110914
  Transmission Date: 20111222
  Serious: Yes (Hospitalization, Other)
  Sender: FDA-Public Use
  Company Number: JP-ROCHE-778619

PATIENT
  Sex: Female
  Weight: 37 kg

DRUGS (16)
  1. RHEUMATREX [Concomitant]
     Route: 048
     Dates: start: 20081217
  2. FERROUS CITRATE [Concomitant]
     Route: 048
  3. PREDNISOLONE [Concomitant]
     Route: 048
     Dates: start: 20080820, end: 20081004
  4. ALFACALCIDOL [Concomitant]
     Dosage: ALSIODOL
     Route: 048
  5. ALENDRONATE SODIUM [Concomitant]
     Dosage: FOSAMAC 35MG
     Route: 048
  6. CLINORIL [Concomitant]
     Route: 048
     Dates: end: 20081119
  7. TOCILIZUMAB [Suspect]
     Indication: RHEUMATOID ARTHRITIS
     Dosage: NOTE: 270-320MG
     Route: 041
     Dates: start: 20080627, end: 20101214
  8. RHEUMATREX [Concomitant]
     Route: 048
     Dates: start: 20050101, end: 20080723
  9. RHEUMATREX [Concomitant]
     Route: 048
     Dates: start: 20081119, end: 20081216
  10. PREDNISOLONE [Concomitant]
     Route: 048
     Dates: end: 20080819
  11. RHEUMATREX [Concomitant]
     Route: 048
     Dates: start: 20050607
  12. LANSOPRAZOLE [Concomitant]
     Route: 048
  13. SELBEX [Concomitant]
     Route: 048
  14. FOLIC ACID [Concomitant]
     Route: 048
     Dates: start: 20050101
  15. PROGRAF [Concomitant]
     Route: 048
     Dates: start: 20080528, end: 20080916
  16. PROGRAF [Concomitant]
     Route: 048
     Dates: start: 20080917, end: 20081004

REACTIONS (4)
  - OSTEOARTHRITIS [None]
  - PNEUMONIA [None]
  - PATELLA FRACTURE [None]
  - DECUBITUS ULCER [None]
